FAERS Safety Report 20889333 (Version 1)
Quarter: 2022Q2

REPORT INFORMATION
  Report Type: Spontaneous
  Country: US (occurrence: US)
  Receive Date: 20220530
  Receipt Date: 20220530
  Transmission Date: 20220720
  Serious: No
  Sender: FDA-Public Use
  Company Number: MIQ-04152022-1573

PATIENT
  Age: 83 Year
  Sex: Female

DRUGS (2)
  1. ALBENDAZOLE [Suspect]
     Active Substance: ALBENDAZOLE
     Indication: Helminthic infection
     Dosage: UNK
     Route: 048
  2. ALBENDAZOLE [Suspect]
     Active Substance: ALBENDAZOLE
     Dosage: UNK
     Route: 048
     Dates: start: 2022, end: 2022

REACTIONS (1)
  - Drug ineffective [Unknown]
